FAERS Safety Report 7762321-4 (Version None)
Quarter: 2011Q3

REPORT INFORMATION
  Report Type: 
  Country: None (occurrence: None)
  Receive Date: 20110920
  Receipt Date: 20110919
  Transmission Date: 20111222
  Serious: Yes (Hospitalization)
  Sender: FDA-Public Use
  Company Number: IT-ROCHE-801797

PATIENT
  Sex: Male
  Weight: 70 kg

DRUGS (5)
  1. PEGINTERFERON ALFA-2A [Suspect]
     Route: 058
     Dates: start: 20110601
  2. RIBAVIRIN [Suspect]
     Route: 048
     Dates: start: 20110601, end: 20110831
  3. PROCAPTAN [Concomitant]
  4. TELAPREVIR [Suspect]
     Route: 048
     Dates: start: 20110601, end: 20110824
  5. PEGINTERFERON ALFA-2A [Suspect]
     Route: 058
     Dates: start: 20110803, end: 20110831

REACTIONS (6)
  - SUPRAVENTRICULAR TACHYCARDIA [None]
  - RED BLOOD CELL COUNT DECREASED [None]
  - BLOOD CREATINE PHOSPHOKINASE INCREASED [None]
  - BLOOD LACTATE DEHYDROGENASE INCREASED [None]
  - PLATELET COUNT DECREASED [None]
  - HAEMOGLOBIN DECREASED [None]
